FAERS Safety Report 7267713-8 (Version None)
Quarter: 2011Q1

REPORT INFORMATION
  Report Type: 
  Country: None (occurrence: None)
  Receive Date: 20110121
  Receipt Date: 20110111
  Transmission Date: 20110831
  Serious: Yes (Death)
  Sender: FDA-Public Use
  Company Number: 799402

PATIENT
  Age: 63 Year
  Sex: Male

DRUGS (16)
  1. PENTAMIDINE ISETHIONATE [Concomitant]
     Indication: PROPHYLAXIS
  2. RITUXIMAB [Suspect]
     Indication: LYMPHOPROLIFERATIVE DISORDER
     Dosage: 375 MG/M 2 MILLIGRAM(S)/SQ. METER
  3. RITUXIMAB [Suspect]
     Indication: ACUTE GRAFT VERSUS HOST DISEASE
     Dosage: 375 MG/M 2 MILLIGRAM(S)/SQ. METER
  4. CYCLOPHOSPHAMIDE [Suspect]
  5. FLUCONAZOLE [Concomitant]
     Indication: PROPHYLAXIS
  6. ACICLOVIR [Concomitant]
     Indication: PROPHYLAXIS
  7. DOXORUBICIN [Suspect]
     Indication: LYMPHOPROLIFERATIVE DISORDER
  8. MYCOPHENOLATE MOFETIL [Suspect]
     Indication: ACUTE GRAFT VERSUS HOST DISEASE
     Dosage: 1000 MG 3 TIMES A DAY, ORAL
     Route: 048
  9. VORICONAZOLE [Concomitant]
     Indication: PROPHYLAXIS
  10. METHYLPREDNISOLONE [Suspect]
     Indication: ACUTE GRAFT VERSUS HOST DISEASE
     Dosage: 2MG/KG MILLIGRAM(S)/KILOGRAM, INTRAVANEOUS (NOT OTHERWISE SPECIFIED)
     Route: 042
  11. TACROLIMUS [Suspect]
     Indication: ACUTE GRAFT VERSUS HOST DISEASE
     Dosage: INTRAVENOUS DRIP
     Route: 041
  12. DACLIZUMAB [Suspect]
     Indication: ACUTE GRAFT VERSUS HOST DISEASE
     Dosage: 1 MG/KG MILLIGRAM(S) KILOGRAM
  13. CAMPATH [Suspect]
     Indication: ACUTE GRAFT VERSUS HOST DISEASE
     Dosage: SEE IMAGE
  14. PREDNISONE [Suspect]
     Indication: LYMPHOPROLIFERATIVE DISORDER
  15. VINCRISTINE SULFATE [Suspect]
     Indication: LYMPHOPROLIFERATIVE DISORDER
  16. ETOPOSIDE [Suspect]
     Indication: LYMPHOPROLIFERATIVE DISORDER

REACTIONS (11)
  - ACANTHAMOEBA INFECTION [None]
  - CENTRAL NERVOUS SYSTEM LESION [None]
  - PROTEIN TOTAL INCREASED [None]
  - WHITE BLOOD CELL COUNT INCREASED [None]
  - BLOOD GLUCOSE DECREASED [None]
  - NECROSIS [None]
  - LUNG NEOPLASM [None]
  - SINUSITIS [None]
  - PAPULE [None]
  - PLEURAL EFFUSION [None]
  - ESCHAR [None]
